FAERS Safety Report 8471737 (Version 2)
Quarter: 2013Q2

REPORT INFORMATION
  Report Type: Spontaneous
  Country: VE (occurrence: VE)
  Receive Date: 20120322
  Receipt Date: 20130503
  Transmission Date: 20140414
  Serious: Yes (Other)
  Sender: FDA-Public Use
  Company Number: VE-PFIZER INC-2012065830

PATIENT
  Age: 69 Year
  Sex: Female

DRUGS (3)
  1. LIPITOR [Suspect]
     Indication: HYPERCHOLESTEROLAEMIA
     Dosage: 20 MG, 1X/DAY
     Route: 048
     Dates: start: 2009
  2. LIPITOR [Suspect]
     Indication: HYPERTRIGLYCERIDAEMIA
  3. DAFLON [Concomitant]
     Indication: VARICOSE VEIN
     Dosage: 500 MG, 1X/DAY
     Route: 048

REACTIONS (3)
  - Cataract [Not Recovered/Not Resolved]
  - Pain in extremity [Not Recovered/Not Resolved]
  - Pain in extremity [Unknown]
